FAERS Safety Report 8303434-8 (Version None)
Quarter: 2012Q2

REPORT INFORMATION
  Report Type: 
  Country: None (occurrence: None)
  Receive Date: 20120423
  Receipt Date: 20120418
  Transmission Date: 20120825
  Serious: No
  Sender: FDA-Public Use
  Company Number: US-PFIZER INC-2012049375

PATIENT
  Sex: Male
  Weight: 85.261 kg

DRUGS (2)
  1. SUTENT [Suspect]
     Indication: RENAL CELL CARCINOMA
     Dosage: 50 MG, UNK, 4 WEEKS ON 2 WEKS OFF
     Route: 048
     Dates: start: 20111206, end: 20120206
  2. SUTENT [Suspect]
     Indication: RENAL CANCER METASTATIC
     Dosage: 50 MG, UNK, 4 WEEKS ON 2 WEEKS OFF
     Route: 048
     Dates: start: 20120221

REACTIONS (1)
  - ATRIAL FIBRILLATION [None]
